FAERS Safety Report 14329990 (Version 3)
Quarter: 2018Q1

REPORT INFORMATION
  Report Type: Spontaneous
  Country: JP (occurrence: JP)
  Receive Date: 20171227
  Receipt Date: 20180205
  Transmission Date: 20180509
  Serious: Yes (Death, Life-Threatening, Hospitalization, Other)
  Sender: FDA-Public Use
  Company Number: JP-GILEAD-2017-0311919

PATIENT
  Age: 76 Year
  Sex: Male
  Weight: 45.9 kg

DRUGS (5)
  1. KETAS [Concomitant]
     Active Substance: IBUDILAST
     Indication: DIZZINESS
     Dosage: 30 MG, UNK
     Route: 048
     Dates: end: 20170518
  2. MEDICONE                           /00104701/ [Concomitant]
     Indication: COUGH
     Dosage: 50 MG, UNK
     Route: 048
     Dates: start: 20170302, end: 20170509
  3. MAGMITT [Concomitant]
     Active Substance: MAGNESIUM OXIDE
     Indication: CONSTIPATION
     Dosage: 990 MG, UNK
     Route: 048
     Dates: start: 20170302, end: 20170509
  4. HARVONI [Suspect]
     Active Substance: LEDIPASVIR\SOFOSBUVIR
     Indication: CHRONIC HEPATITIS C
     Dosage: UNK
     Route: 065
     Dates: start: 20160203, end: 20160426
  5. TAKELDA [Concomitant]
     Active Substance: ASPIRIN\LANSOPRAZOLE
     Indication: CEREBRAL INFARCTION
     Dosage: UNK
     Route: 048
     Dates: start: 20170124, end: 20170518

REACTIONS (18)
  - Decreased appetite [Unknown]
  - Dysphagia [Unknown]
  - Condition aggravated [Fatal]
  - Cancer pain [Recovering/Resolving]
  - Hypocalcaemia [Unknown]
  - Pleural effusion [Unknown]
  - Metastases to bone [Fatal]
  - Hepatocellular carcinoma [Fatal]
  - Metastases to lymph nodes [Fatal]
  - Pathological fracture [Fatal]
  - Pneumonia aspiration [Unknown]
  - Delayed recovery from anaesthesia [Unknown]
  - Functional residual capacity decreased [Unknown]
  - Pyrexia [Recovered/Resolved]
  - Cardio-respiratory arrest [Fatal]
  - Tumour invasion [Unknown]
  - Hepatocellular carcinoma [Fatal]
  - Oxygen saturation decreased [Recovered/Resolved]

NARRATIVE: CASE EVENT DATE: 201610
